FAERS Safety Report 14860315 (Version 3)
Quarter: 2018Q3

REPORT INFORMATION
  Report Type: Spontaneous
  Country: US (occurrence: US)
  Receive Date: 20180508
  Receipt Date: 20180824
  Transmission Date: 20181010
  Serious: Yes (Other)
  Sender: FDA-Public Use
  Company Number: US-BAYER-2018-087615

PATIENT
  Age: 30 Year
  Sex: Female
  Weight: 106 kg

DRUGS (10)
  1. KYLEENA [Suspect]
     Active Substance: LEVONORGESTREL
     Indication: CONTRACEPTION
     Dosage: 17.5 MCG/24HR, CONT
     Route: 015
     Dates: start: 201702, end: 201710
  2. MULTIVITAMIN [Concomitant]
     Active Substance: VITAMINS
     Dosage: UNK UNK, QD
     Route: 048
  3. PROVERA [Concomitant]
     Active Substance: MEDROXYPROGESTERONE ACETATE
     Dosage: UNK UNK, QD
     Route: 048
  4. KYLEENA [Suspect]
     Active Substance: LEVONORGESTREL
     Indication: MENORRHAGIA
     Dosage: 17.5 MCG/24HR, CONT
     Route: 015
     Dates: start: 20180305, end: 20180328
  5. IRON POLYMALTOSE [Concomitant]
     Active Substance: IRON POLYMALTOSE
     Dosage: 25 MG BY MOUTH
     Route: 048
  6. MIRENA [Suspect]
     Active Substance: LEVONORGESTREL
     Dosage: 20 MCG/24HR, CONT
     Route: 015
     Dates: start: 20180511, end: 20180621
  7. AYGESTIN [Concomitant]
     Active Substance: NORETHINDRONE ACETATE
     Dosage: UNK UNK, QD
     Route: 048
  8. ONDANSETRON [Concomitant]
     Active Substance: ONDANSETRON
     Dosage: 1 DF, PRN
  9. ZOFRAN [Concomitant]
     Active Substance: ONDANSETRON HYDROCHLORIDE
     Dosage: UNK UNK, QD
     Route: 048
  10. NORGESTIMATE [Concomitant]
     Active Substance: NORGESTIMATE
     Dosage: 1 DF, QD

REACTIONS (13)
  - Menorrhagia [None]
  - Dysmenorrhoea [None]
  - Fatigue [None]
  - Iron deficiency anaemia [Not Recovered/Not Resolved]
  - Device expulsion [None]
  - Device expulsion [None]
  - Uterine leiomyoma [None]
  - Genital haemorrhage [None]
  - Genital haemorrhage [None]
  - Uterine fibrosis [Not Recovered/Not Resolved]
  - Embedded device [None]
  - Device expulsion [None]
  - Menstruation irregular [None]

NARRATIVE: CASE EVENT DATE: 2017
